FAERS Safety Report 24439985 (Version 3)
Quarter: 2025Q2

REPORT INFORMATION
  Report Type: Report from Study
  Country: US (occurrence: US)
  Receive Date: 20241015
  Receipt Date: 20250411
  Transmission Date: 20250716
  Serious: Yes (Hospitalization, Other)
  Sender: ABBVIE
  Company Number: US-ABBVIE-5957055

PATIENT
  Age: 57 Year
  Sex: Female

DRUGS (1)
  1. HUMIRA [Suspect]
     Active Substance: ADALIMUMAB
     Indication: Rheumatoid arthritis
     Route: 058
     Dates: start: 20240926

REACTIONS (15)
  - Cardiac ventricular thrombosis [Not Recovered/Not Resolved]
  - Pain in extremity [Unknown]
  - Fibrin D dimer increased [Unknown]
  - Pulmonary thrombosis [Not Recovered/Not Resolved]
  - Chest pain [Recovered/Resolved]
  - Chest pain [Unknown]
  - Dyspnoea [Unknown]
  - Fall [Unknown]
  - Thrombosis [Not Recovered/Not Resolved]
  - Peripheral swelling [Unknown]
  - Illness [Not Recovered/Not Resolved]
  - Uveitis [Not Recovered/Not Resolved]
  - Visual impairment [Not Recovered/Not Resolved]
  - Injection site bruising [Recovering/Resolving]
  - Systemic lupus erythematosus [Not Recovered/Not Resolved]

NARRATIVE: CASE EVENT DATE: 20240101
